FAERS Safety Report 13932411 (Version 2)
Quarter: 2025Q3

REPORT INFORMATION
  Report Type: Spontaneous
  Country: EU (occurrence: EU)
  Receive Date: 20170904
  Receipt Date: 20250714
  Transmission Date: 20251021
  Serious: Yes (Other)
  Sender: CIPLA
  Company Number: EU-CIPLA LTD.-2017IT15283

PATIENT

DRUGS (21)
  1. LAMIVUDINE [Suspect]
     Active Substance: LAMIVUDINE
     Indication: Antiviral prophylaxis
     Route: 065
     Dates: start: 2010, end: 201501
  2. TENOFOVIR [Suspect]
     Active Substance: TENOFOVIR
     Indication: Hepatitis B reactivation
     Route: 065
  3. CYCLOPHOSPHAMIDE [Suspect]
     Active Substance: CYCLOPHOSPHAMIDE
     Indication: Non-Hodgkin^s lymphoma stage IV
     Route: 065
     Dates: start: 200309, end: 200401
  4. DOXORUBICIN HYDROCHLORIDE [Suspect]
     Active Substance: DOXORUBICIN HYDROCHLORIDE
     Indication: Non-Hodgkin^s lymphoma stage IV
     Route: 065
     Dates: start: 200309, end: 200401
  5. VINCRISTINE [Suspect]
     Active Substance: VINCRISTINE
     Indication: Non-Hodgkin^s lymphoma stage IV
     Route: 065
     Dates: start: 200309, end: 200401
  6. FLUDARABINE PHOSPHATE [Suspect]
     Active Substance: FLUDARABINE PHOSPHATE
     Indication: Non-Hodgkin^s lymphoma stage IV
     Route: 065
  7. FLUDARABINE PHOSPHATE [Suspect]
     Active Substance: FLUDARABINE PHOSPHATE
     Route: 065
     Dates: start: 200503
  8. CISPLATIN [Suspect]
     Active Substance: CISPLATIN
     Indication: Non-Hodgkin^s lymphoma stage IV
     Route: 065
     Dates: start: 201110
  9. DEXAMETHASONE [Suspect]
     Active Substance: DEXAMETHASONE
     Indication: Non-Hodgkin^s lymphoma stage IV
     Route: 065
     Dates: start: 201110
  10. METHOTREXATE [Suspect]
     Active Substance: METHOTREXATE
     Indication: Prophylaxis against graft versus host disease
     Route: 065
  11. CYCLOSPORINE [Suspect]
     Active Substance: CYCLOSPORINE
     Indication: Prophylaxis against graft versus host disease
     Route: 065
  12. RITUXIMAB [Suspect]
     Active Substance: RITUXIMAB
     Indication: Non-Hodgkin^s lymphoma stage IV
     Route: 065
     Dates: start: 200309, end: 200401
  13. RITUXIMAB [Suspect]
     Active Substance: RITUXIMAB
     Route: 065
     Dates: start: 201005
  14. RITUXIMAB [Suspect]
     Active Substance: RITUXIMAB
     Route: 065
     Dates: start: 201110
  15. PREDNISONE [Suspect]
     Active Substance: PREDNISONE
     Indication: Non-Hodgkin^s lymphoma stage IV
     Route: 065
     Dates: start: 200309, end: 200401
  16. BENDAMUSTINE [Suspect]
     Active Substance: BENDAMUSTINE
     Indication: Non-Hodgkin^s lymphoma stage IV
     Route: 065
     Dates: start: 201005
  17. CYTARABINE [Suspect]
     Active Substance: CYTARABINE
     Indication: Non-Hodgkin^s lymphoma stage IV
     Route: 065
     Dates: start: 201110
  18. OFATUMUMAB [Suspect]
     Active Substance: OFATUMUMAB
     Indication: Non-Hodgkin^s lymphoma stage IV
     Route: 065
     Dates: start: 2012
  19. THIOTEPA [Suspect]
     Active Substance: THIOTEPA
     Indication: Non-Hodgkin^s lymphoma stage IV
     Route: 065
  20. BUSULFAN [Suspect]
     Active Substance: BUSULFAN
     Indication: Non-Hodgkin^s lymphoma stage IV
     Route: 065
  21. ALEMTUZUMAB [Suspect]
     Active Substance: ALEMTUZUMAB
     Indication: Non-Hodgkin^s lymphoma stage IV
     Route: 065

REACTIONS (8)
  - Disease progression [Unknown]
  - Lung adenocarcinoma [Unknown]
  - Disease recurrence [Unknown]
  - Bronchopulmonary aspergillosis [Unknown]
  - Nephropathy toxic [Unknown]
  - Osteopenia [Unknown]
  - Hepatitis B [Recovered/Resolved]
  - Hepatitis B reactivation [Recovering/Resolving]

NARRATIVE: CASE EVENT DATE: 20050301
